FAERS Safety Report 4807927-7 (Version None)
Quarter: 2005Q4

REPORT INFORMATION
  Report Type: 
  Country: None (occurrence: None)
  Receive Date: 20051021
  Receipt Date: 20051006
  Transmission Date: 20060501
  Serious: Yes (Hospitalization)
  Sender: FDA-Public Use
  Company Number: 2005S1009909

PATIENT
  Age: 76 Year
  Sex: Female
  Weight: 72.5755 kg

DRUGS (25)
  1. FENTANYL [Suspect]
     Indication: BACK PAIN
     Dosage: SEE IMAGE
     Route: 062
     Dates: start: 20050701, end: 20050701
  2. FENTANYL [Suspect]
     Indication: OSTEOMYELITIS
     Dosage: SEE IMAGE
     Route: 062
     Dates: start: 20050701, end: 20050701
  3. FENTANYL [Suspect]
     Indication: SPINAL LAMINECTOMY
     Dosage: SEE IMAGE
     Route: 062
     Dates: start: 20050701, end: 20050701
  4. FENTANYL [Suspect]
     Indication: STAPHYLOCOCCAL INFECTION
     Dosage: SEE IMAGE
     Route: 062
     Dates: start: 20050701, end: 20050701
  5. FENTANYL [Suspect]
     Indication: BACK PAIN
     Dosage: SEE IMAGE
     Route: 062
     Dates: end: 20050901
  6. FENTANYL [Suspect]
     Indication: OSTEOMYELITIS
     Dosage: SEE IMAGE
     Route: 062
     Dates: end: 20050901
  7. FENTANYL [Suspect]
     Indication: SPINAL LAMINECTOMY
     Dosage: SEE IMAGE
     Route: 062
     Dates: end: 20050901
  8. FENTANYL [Suspect]
     Indication: STAPHYLOCOCCAL INFECTION
     Dosage: SEE IMAGE
     Route: 062
     Dates: end: 20050901
  9. FENTANYL [Suspect]
     Indication: BACK PAIN
     Dosage: SEE IMAGE
     Route: 062
     Dates: start: 20050701, end: 20050701
  10. FENTANYL [Suspect]
     Indication: OSTEOMYELITIS
     Dosage: SEE IMAGE
     Route: 062
     Dates: start: 20050701, end: 20050701
  11. FENTANYL [Suspect]
     Indication: SPINAL LAMINECTOMY
     Dosage: SEE IMAGE
     Route: 062
     Dates: start: 20050701, end: 20050701
  12. FENTANYL [Suspect]
     Indication: STAPHYLOCOCCAL INFECTION
     Dosage: SEE IMAGE
     Route: 062
     Dates: start: 20050701, end: 20050701
  13. FENTANYL [Suspect]
     Indication: BACK PAIN
     Dosage: SEE IMAGE
     Route: 062
     Dates: start: 20050901
  14. FENTANYL [Suspect]
     Indication: OSTEOMYELITIS
     Dosage: SEE IMAGE
     Route: 062
     Dates: start: 20050901
  15. FENTANYL [Suspect]
     Indication: SPINAL LAMINECTOMY
     Dosage: SEE IMAGE
     Route: 062
     Dates: start: 20050901
  16. FENTANYL [Suspect]
     Indication: STAPHYLOCOCCAL INFECTION
     Dosage: SEE IMAGE
     Route: 062
     Dates: start: 20050901
  17. FENTANYL TRANSDERMAL SYSTEM [Suspect]
     Indication: BACK PAIN
     Dosage: 75 MCG/HR;QOD;TDER
     Route: 062
     Dates: start: 20050701, end: 20050701
  18. FENTANYL TRANSDERMAL SYSTEM [Suspect]
     Indication: OSTEOMYELITIS
     Dosage: 75 MCG/HR;QOD;TDER
     Route: 062
     Dates: start: 20050701, end: 20050701
  19. FENTANYL TRANSDERMAL SYSTEM [Suspect]
     Indication: SPINAL LAMINECTOMY
     Dosage: 75 MCG/HR;QOD;TDER
     Route: 062
     Dates: start: 20050701, end: 20050701
  20. FENTANYL TRANSDERMAL SYSTEM [Suspect]
     Indication: STAPHYLOCOCCAL INFECTION
     Dosage: 75 MCG/HR;QOD;TDER
     Route: 062
     Dates: start: 20050701, end: 20050701
  21. FENTANYL TRANSDERMAL SYSTEM [Suspect]
     Indication: BACK PAIN
     Dosage: 100 MCG/HR;QOD;TDER
     Route: 062
     Dates: start: 20050701
  22. FENTANYL TRANSDERMAL SYSTEM [Suspect]
     Indication: OSTEOMYELITIS
     Dosage: 100 MCG/HR;QOD;TDER
     Route: 062
     Dates: start: 20050701
  23. FENTANYL TRANSDERMAL SYSTEM [Suspect]
     Indication: SPINAL LAMINECTOMY
     Dosage: 100 MCG/HR;QOD;TDER
     Route: 062
     Dates: start: 20050701
  24. FENTANYL TRANSDERMAL SYSTEM [Suspect]
     Indication: STAPHYLOCOCCAL INFECTION
     Dosage: 100 MCG/HR;QOD;TDER
     Route: 062
     Dates: start: 20050701
  25. FENTANYL CITRATE [Concomitant]

REACTIONS (2)
  - DRUG INEFFECTIVE [None]
  - THERAPEUTIC RESPONSE UNEXPECTED WITH DRUG SUBSTITUTION [None]
